FAERS Safety Report 7404347-6 (Version None)
Quarter: 2011Q2

REPORT INFORMATION
  Report Type: 
  Country: None (occurrence: None)
  Receive Date: 20110408
  Receipt Date: 20110404
  Transmission Date: 20111010
  Serious: Yes (Hospitalization)
  Sender: FDA-Public Use
  Company Number: US-ABBOTT-11P-163-0717180-00

PATIENT
  Age: 63 Year
  Sex: Female

DRUGS (4)
  1. NEMBUTAL [Concomitant]
     Indication: PRODUCT USED FOR UNKNOWN INDICATION
  2. HUMIRA [Suspect]
     Indication: MYALGIA
     Route: 058
     Dates: start: 20110201, end: 20110301
  3. HUMIRA [Suspect]
     Dates: start: 20110301
  4. LEVOTHYROXINE [Concomitant]
     Indication: HYPOTHYROIDISM
     Dosage: DAILY
     Route: 048

REACTIONS (8)
  - PYREXIA [None]
  - MYALGIA [None]
  - THROMBOSIS [None]
  - COUGH [None]
  - RHINORRHOEA [None]
  - LYMPHADENOPATHY [None]
  - DECREASED APPETITE [None]
  - NASOPHARYNGITIS [None]
